APPROVED DRUG PRODUCT: CEFOBID IN PLASTIC CONTAINER
Active Ingredient: CEFOPERAZONE SODIUM
Strength: EQ 40MG BASE/ML
Dosage Form/Route: INJECTABLE;INJECTION
Application: N050613 | Product #001
Applicant: PFIZER LABORATORIES DIV PFIZER INC
Approved: Jul 23, 1986 | RLD: No | RS: No | Type: DISCN